FAERS Safety Report 19738295 (Version 1)
Quarter: 2021Q3

REPORT INFORMATION
  Report Type: Spontaneous
  Country: US (occurrence: US)
  Receive Date: 20210824
  Receipt Date: 20210824
  Transmission Date: 20211014
  Serious: No
  Sender: FDA-Public Use
  Company Number: US-JNJFOC-20210827526

PATIENT
  Sex: Female

DRUGS (1)
  1. MENS ROGAINE EXTRA STRENGTH [Suspect]
     Active Substance: MINOXIDIL
     Indication: ALOPECIA
     Dosage: TAKE THE DROPPER AND PUT A LITTLE 3?4  DROPS AND THEN TAKE AN Q TIPS AND RUN IT ON SCALP.
     Route: 061

REACTIONS (3)
  - Intentional product misuse [Unknown]
  - Product use issue [Unknown]
  - Wrong technique in product usage process [Unknown]
